FAERS Safety Report 10063242 (Version 1)
Quarter: 2014Q2

REPORT INFORMATION
  Report Type: Report from Study
  Country: FR (occurrence: FR)
  Receive Date: 20140407
  Receipt Date: 20140407
  Transmission Date: 20141212
  Serious: Yes (Hospitalization)
  Sender: FDA-Public Use
  Company Number: FR-CELGENEUS-056-22393-14034921

PATIENT
  Age: 68 Year
  Sex: Male
  Weight: 62 kg

DRUGS (5)
  1. ISTODAX [Suspect]
     Indication: T-CELL LYMPHOMA
     Dosage: 21 MILLIGRAM
     Route: 065
     Dates: start: 20140321
  2. CYCLOPHOSPHAMIDE [Suspect]
     Indication: T-CELL LYMPHOMA
     Route: 065
     Dates: start: 20140321
  3. ADRIAMYCIN [Suspect]
     Indication: T-CELL LYMPHOMA
     Route: 065
     Dates: start: 20140321
  4. VINCRISTINE [Suspect]
     Indication: T-CELL LYMPHOMA
     Route: 065
     Dates: start: 20140321
  5. PREDNISONE [Suspect]
     Indication: T-CELL LYMPHOMA
     Route: 065
     Dates: start: 20140321

REACTIONS (2)
  - Bronchopneumonia [Not Recovered/Not Resolved]
  - Atrial fibrillation [Not Recovered/Not Resolved]
